FAERS Safety Report 19949436 (Version 1)
Quarter: 2021Q4

REPORT INFORMATION
  Report Type: Report from Study
  Country: US (occurrence: US)
  Receive Date: 20211013
  Receipt Date: 20211013
  Transmission Date: 20220303
  Serious: Yes (Hospitalization)
  Sender: FDA-Public Use
  Company Number: US-ROCHE-2931263

PATIENT
  Age: 59 Year
  Sex: Female

DRUGS (2)
  1. ATEZOLIZUMAB [Suspect]
     Active Substance: ATEZOLIZUMAB
     Indication: Non-small cell lung cancer
     Dosage: CYCLE = 28 DAYS?ON 24/SEP/2019, SHE RECEIVED MOST RECENT DOSE OF ATEZOLIZUMAB PRIOR TO THE EVENT
     Route: 041
     Dates: start: 20180605
  2. COBIMETINIB [Suspect]
     Active Substance: COBIMETINIB
     Indication: Non-small cell lung cancer
     Dosage: CYCLE = 28 DAYS?ON 24/SEP/2019, SHE RECEIVED MOST RECENT DOSE OF COBIMETINIB PRIOR TO THE EVENT
     Route: 048
     Dates: start: 20180605

REACTIONS (2)
  - Urinary tract obstruction [Unknown]
  - Pyrexia [Unknown]

NARRATIVE: CASE EVENT DATE: 20200611
